FAERS Safety Report 25920124 (Version 1)
Quarter: 2025Q4

REPORT INFORMATION
  Report Type: Spontaneous
  Country: US (occurrence: None)
  Receive Date: 20251014
  Receipt Date: 20251014
  Transmission Date: 20260118
  Serious: Yes (Hospitalization)
  Sender: FDA-CTU
  Company Number: None

PATIENT
  Age: 72 Year
  Sex: Male

DRUGS (11)
  1. ENTECAVIR [Suspect]
     Active Substance: ENTECAVIR
     Indication: Product used for unknown indication
     Dosage: FREQUENCY : DAILY;?
     Route: 048
     Dates: start: 20250314
  2. ACYCLOVIR [Concomitant]
     Active Substance: ACYCLOVIR
  3. ALLOPURINOL TAB 300MG [Concomitant]
  4. DEXAMETHASON TA8 4MG [Concomitant]
  5. FAMOTIDINE [Concomitant]
     Active Substance: FAMOTIDINE
  6. FLUCONAZOLE TA8 200MG [Concomitant]
  7. GABAPENTIN CAP 1DDMG [Concomitant]
  8. GABAPENTIN CAP 30DMG [Concomitant]
  9. GNP CLEARLAX PAK 3350 [Concomitant]
  10. ACETAMINOPHEN\HYDROCODONE [Concomitant]
     Active Substance: ACETAMINOPHEN\HYDROCODONE
  11. IBUPROFEN TAB 600MG [Concomitant]

REACTIONS (1)
  - Pyrexia [None]

NARRATIVE: CASE EVENT DATE: 20250927
